FAERS Safety Report 11846394 (Version 1)
Quarter: 2015Q4

REPORT INFORMATION
  Report Type: Report from Study
  Country: US (occurrence: US)
  Receive Date: 20151217
  Receipt Date: 20151217
  Transmission Date: 20160305
  Serious: No
  Sender: FDA-Public Use
  Company Number: US-CELGENEUS-USA-2015112417

PATIENT
  Sex: Female
  Weight: 43.58 kg

DRUGS (1)
  1. THALOMID [Suspect]
     Active Substance: THALIDOMIDE
     Indication: PLASMA CELL MYELOMA
     Route: 048

REACTIONS (4)
  - Nausea [Unknown]
  - Hypophagia [Unknown]
  - Abnormal loss of weight [Unknown]
  - Asthenia [Unknown]
